FAERS Safety Report 5933973-6 (Version None)
Quarter: 2008Q4

REPORT INFORMATION
  Report Type: 
  Country: None (occurrence: None)
  Receive Date: 20081028
  Receipt Date: 20081028
  Transmission Date: 20090506
  Serious: Yes (Other)
  Sender: FDA-Public Use
  Company Number: None

PATIENT
  Age: 78 Year
  Sex: Male
  Weight: 56 kg

DRUGS (1)
  1. AMIODARONE HYDROCHLORIDE [Suspect]
     Indication: VENTRICULAR ARRHYTHMIA
     Dosage: 200 MG EVERY 24 HOURS PO
     Route: 048
     Dates: start: 20080106, end: 20080114

REACTIONS (1)
  - PULMONARY TOXICITY [None]
